FAERS Safety Report 16066197 (Version 11)
Quarter: 2022Q1

REPORT INFORMATION
  Report Type: Other
  Country: CA (occurrence: None)
  Receive Date: 20190313
  Receipt Date: 20220228
  Transmission Date: 20220423
  Serious: Yes (Hospitalization, Other)
  Sender: FDA-Public Use
  Company Number: CA-ROCHE-2279055

PATIENT
  Age: 38 Year
  Sex: Female
  Weight: 99.6 kg

DRUGS (8)
  1. OCREVUS [Suspect]
     Active Substance: OCRELIZUMAB
     Indication: Relapsing-remitting multiple sclerosis
     Dosage: 300 MG AT DAY 0 AND 14, THEN 600 MG EVERY 6 MONTH ;ONGOING: YES?CONCENTRATE FOR INTRAVENOUS INFUSION
     Route: 042
     Dates: start: 20190306
  2. OCREVUS [Suspect]
     Active Substance: OCRELIZUMAB
     Dosage: 300 MG IN 10ML X 2 VIALS,
     Route: 042
     Dates: start: 20170101
  3. OCREVUS [Suspect]
     Active Substance: OCRELIZUMAB
     Route: 042
     Dates: start: 20210826
  4. DALFAMPRIDINE [Concomitant]
     Active Substance: DALFAMPRIDINE
  5. MYRBETRIQ [Concomitant]
     Active Substance: MIRABEGRON
  6. BACLOFEN [Concomitant]
     Active Substance: BACLOFEN
     Indication: Muscle spasticity
  7. BOTOX [Concomitant]
     Active Substance: ONABOTULINUMTOXINA
  8. TOPROL XL [Concomitant]
     Active Substance: METOPROLOL SUCCINATE

REACTIONS (12)
  - Urinary tract infection [Recovered/Resolved]
  - Tachycardia [Unknown]
  - Tachycardia [Recovered/Resolved]
  - Nasal congestion [Recovered/Resolved]
  - Heart rate increased [Recovered/Resolved]
  - Asthenia [Not Recovered/Not Resolved]
  - Bacterial vaginosis [Recovered/Resolved]
  - Cough [Recovered/Resolved]
  - Viral infection [Recovered/Resolved]
  - Heart rate abnormal [Recovered/Resolved]
  - Feeling abnormal [Unknown]
  - Cystitis [Recovered/Resolved]

NARRATIVE: CASE EVENT DATE: 20190301
